FAERS Safety Report 10676361 (Version 1)
Quarter: 2014Q4

REPORT INFORMATION
  Report Type: Spontaneous
  Country: JP (occurrence: JP)
  Receive Date: 20141226
  Receipt Date: 20141226
  Transmission Date: 20150529
  Serious: Yes (Other)
  Sender: FDA-Public Use
  Company Number: JP-CIPLA LTD.-2014JP02896

PATIENT
  Age: 68 Year
  Sex: Female

DRUGS (4)
  1. DEXAMETHASONE. [Concomitant]
     Active Substance: DEXAMETHASONE
  2. GEMCITABINE [Suspect]
     Active Substance: GEMCITABINE\GEMCITABINE HYDROCHLORIDE
     Indication: TRANSITIONAL CELL CARCINOMA URETHRA
     Dosage: 800 MG/M2, ON DAYS 1, 8, AND 15, REPEATED EVERY 28 DAYS
  3. 5 HYDROXYTRYPTAMINE RECEPTOR ANTAGONIST [Concomitant]
     Indication: PROPHYLAXIS OF NAUSEA AND VOMITING
     Dosage: ON DAYS 1, 2, 8, AND 15
  4. CARBOPLATIN. [Suspect]
     Active Substance: CARBOPLATIN
     Indication: TRANSITIONAL CELL CARCINOMA URETHRA
     Dosage: AUC 5 FOR FIRST LINE THERAPY AND AUC 4 FOR SECOND LINE THERAPY ON DAY 2, REPEATED EVERY 28 DAYS

REACTIONS (1)
  - Pneumonitis [Unknown]
